FAERS Safety Report 26040094 (Version 1)
Quarter: 2025Q4

REPORT INFORMATION
  Report Type: Spontaneous
  Country: US (occurrence: None)
  Receive Date: 20251113
  Receipt Date: 20251113
  Transmission Date: 20260118
  Serious: Yes (Hospitalization)
  Sender: ENCUBE ETHICALS PVT. LTD.
  Company Number: US-Encube-002594

PATIENT
  Age: 65 Year
  Sex: Male

DRUGS (3)
  1. DICLOFENAC SODIUM [Suspect]
     Active Substance: DICLOFENAC SODIUM
     Indication: Product used for unknown indication
     Dosage: USED IT FOR APPROXIMATELY A WEEK AND A HALF
     Dates: start: 202510, end: 20251103
  2. NORVASC [Concomitant]
     Active Substance: AMLODIPINE BESYLATE
  3. MOBIC [Concomitant]
     Active Substance: MELOXICAM

REACTIONS (8)
  - Severe cutaneous adverse reaction [Not Recovered/Not Resolved]
  - Blister [Not Recovered/Not Resolved]
  - Erythema [Not Recovered/Not Resolved]
  - Peripheral swelling [Not Recovered/Not Resolved]
  - Scab [Not Recovered/Not Resolved]
  - Urticaria [Not Recovered/Not Resolved]
  - Gait inability [Not Recovered/Not Resolved]
  - Pain [Not Recovered/Not Resolved]

NARRATIVE: CASE EVENT DATE: 20251101
